FAERS Safety Report 9294945 (Version 1)
Quarter: 2013Q1

REPORT INFORMATION
  Report Type: Spontaneous
  Country: US (occurrence: None)
  Receive Date: 20121227
  Receipt Date: 20121227
  Transmission Date: 20140127
  Serious: Yes (Death, Hospitalization)
  Sender: FDA-Public Use
  Company Number: PHEH2011US009200

PATIENT
  Sex: Female

DRUGS (1)
  1. EXJADE (*72670*) DISPENSIBLE TABLET [Suspect]
     Indication: MYELODYSPLASTIC SYNDROME
     Route: 048
     Dates: start: 201109

REACTIONS (2)
  - Myelodysplastic syndrome transformation [None]
  - Leukaemia [None]
